FAERS Safety Report 15110959 (Version 3)
Quarter: 2018Q3

REPORT INFORMATION
  Report Type: Spontaneous
  Country: EG (occurrence: EG)
  Receive Date: 20180705
  Receipt Date: 20180718
  Transmission Date: 20181010
  Serious: Yes (Other)
  Sender: FDA-Public Use
  Company Number: EG-TELIGENT, INC-IGIL20180360

PATIENT
  Age: 18 Year
  Sex: Male
  Weight: 53 kg

DRUGS (1)
  1. CEFTAZIDIME. [Suspect]
     Active Substance: CEFTAZIDIME
     Indication: ANTIBIOTIC PROPHYLAXIS
     Dosage: 1 MG
     Route: 042

REACTIONS (2)
  - Hypersensitivity [Recovered/Resolved]
  - Shock [Recovered/Resolved]
